FAERS Safety Report 16555600 (Version 1)
Quarter: 2019Q3

REPORT INFORMATION
  Report Type: Spontaneous
  Country: CN (occurrence: CN)
  Receive Date: 20190710
  Receipt Date: 20190710
  Transmission Date: 20191004
  Serious: Yes (Life-Threatening, Hospitalization)
  Sender: FDA-Public Use
  Company Number: CN-PFIZER INC-2019292379

PATIENT
  Age: 56 Year
  Sex: Male
  Weight: 52 kg

DRUGS (6)
  1. CYTARABINE. [Suspect]
     Active Substance: CYTARABINE
     Indication: DIFFUSE LARGE B-CELL LYMPHOMA
     Dosage: 2 G, 2X/DAY
     Route: 041
     Dates: start: 20190610, end: 20190610
  2. METHOTREXATE. [Suspect]
     Active Substance: METHOTREXATE
     Indication: DIFFUSE LARGE B-CELL LYMPHOMA
     Dosage: 5.3 G, 1X/DAY
     Route: 041
     Dates: start: 20190609, end: 20190609
  3. GLUCOSE INJECTION [Concomitant]
     Active Substance: DEXTROSE
     Indication: VEHICLE SOLUTION USE
     Dosage: 350 ML, 1X/DAY
     Route: 041
     Dates: start: 20190609, end: 20190609
  4. GLUCOSE INJECTION [Concomitant]
     Active Substance: DEXTROSE
     Dosage: 500 ML, 2X/DAY
     Route: 041
     Dates: start: 20190610, end: 20190610
  5. RITUXIMAB. [Suspect]
     Active Substance: RITUXIMAB
     Indication: DIFFUSE LARGE B-CELL LYMPHOMA
     Dosage: 0.6 G, 1X/DAY
     Route: 041
     Dates: start: 20190608, end: 20190608
  6. SODIUM CHLORIDE. [Concomitant]
     Active Substance: SODIUM CHLORIDE
     Indication: VEHICLE SOLUTION USE
     Dosage: 600 ML, 1X/DAY
     Route: 041
     Dates: start: 20190608, end: 20190608

REACTIONS (1)
  - Bone marrow failure [Recovering/Resolving]

NARRATIVE: CASE EVENT DATE: 20190621
